FAERS Safety Report 19477012 (Version 1)
Quarter: 2021Q2

REPORT INFORMATION
  Report Type: Spontaneous
  Country: FR (occurrence: FR)
  Receive Date: 20210630
  Receipt Date: 20210630
  Transmission Date: 20210717
  Serious: Yes (Hospitalization, Other)
  Sender: FDA-Public Use
  Company Number: FR-ACCORD-229813

PATIENT
  Age: 59 Year
  Sex: Male
  Weight: 89.5 kg

DRUGS (11)
  1. REANUTRIFLEX OMEGA [Suspect]
     Active Substance: AMINO ACIDS\DEXTROSE\ELECTROLYTES NOS\SOYBEAN OIL
     Indication: STARVATION
     Route: 042
     Dates: start: 20210426, end: 20210430
  2. FLUCORTAC [Suspect]
     Active Substance: FLUDROCORTISONE ACETATE
     Indication: PRODUCT USED FOR UNKNOWN INDICATION
     Dosage: STRENGTH? 50 MICROGRAMS, SCORED TABLET
     Route: 048
     Dates: start: 20210419, end: 20210419
  3. LOVENOX [Concomitant]
     Active Substance: ENOXAPARIN SODIUM
  4. FUROSEMIDE. [Suspect]
     Active Substance: FUROSEMIDE
     Indication: BRONCHIAL OBSTRUCTION
     Route: 042
     Dates: start: 20210419, end: 20210427
  5. PANTOPRAZOLE [Concomitant]
     Active Substance: PANTOPRAZOLE
  6. PHOSPHONEUROS [Concomitant]
     Active Substance: CALCIUM PHOSPHATE, DIBASIC, ANHYDROUS\MAGNESIUM GLYCEROPHOSPHATE\PHOSPHORIC ACID\SODIUM PHOSPHATE, DIBASIC
  7. TIXTAR [Concomitant]
     Active Substance: RIFAXIMIN
  8. INSULIN PORCINE [Suspect]
     Active Substance: INSULIN PORK\INSULIN PURIFIED PORK
     Indication: HYPERGLYCAEMIA
     Route: 058
     Dates: start: 20210410
  9. LACTULOSE. [Concomitant]
     Active Substance: LACTULOSE
  10. NOREPINEPHRINE. [Concomitant]
     Active Substance: NOREPINEPHRINE
  11. TERBUTALINE [Concomitant]
     Active Substance: TERBUTALINE

REACTIONS (2)
  - Hypokalaemia [Recovered/Resolved]
  - Product prescribing error [Recovered/Resolved]

NARRATIVE: CASE EVENT DATE: 20210427
